FAERS Safety Report 6814714-7 (Version None)
Quarter: 2010Q2

REPORT INFORMATION
  Report Type: 
  Country: None (occurrence: None)
  Receive Date: 20100629
  Receipt Date: 20100614
  Transmission Date: 20101027
  Serious: Yes (Life-Threatening, Hospitalization)
  Sender: FDA-Public Use
  Company Number: AUR-APL-2010-01547

PATIENT
  Age: 58 Year
  Sex: Female

DRUGS (9)
  1. CITALOPRAM HYDROBROMIDE [Suspect]
     Dosage: 60 MG - DAILY -
  2. QUETIAPINE [Suspect]
     Dosage: 50 MG TID, 200 MG QHS
  3. HYDROCHLOROTHIAZIDE [Suspect]
     Dosage: 250 MG - DAILY
  4. CLONAZEPAM [Concomitant]
  5. ACAMPROSATE [Concomitant]
  6. ATENOLOL [Concomitant]
  7. RANITIDINE [Concomitant]
  8. MIRTAZAPINE [Concomitant]
  9. ROSUVASTATIN [Concomitant]

REACTIONS (9)
  - ASTHENIA [None]
  - BLOOD MAGNESIUM DECREASED [None]
  - ELECTROCARDIOGRAM QT PROLONGED [None]
  - HYPERHIDROSIS [None]
  - HYPOKALAEMIA [None]
  - MALAISE [None]
  - NAUSEA [None]
  - TORSADE DE POINTES [None]
  - VENTRICULAR FIBRILLATION [None]
